FAERS Safety Report 23214819 (Version 2)
Quarter: 2023Q4

REPORT INFORMATION
  Report Type: Spontaneous
  Country: CN (occurrence: CN)
  Receive Date: 20231121
  Receipt Date: 20231206
  Transmission Date: 20240110
  Serious: Yes (Hospitalization)
  Sender: FDA-Public Use
  Company Number: CN-JNJFOC-20231143789

PATIENT
  Age: 3 Year
  Sex: Female

DRUGS (6)
  1. IBUPROFEN [Suspect]
     Active Substance: IBUPROFEN
     Indication: Antipyresis
     Route: 048
     Dates: start: 20231105, end: 20231105
  2. IBUPROFEN [Suspect]
     Active Substance: IBUPROFEN
     Indication: Nasal congestion
  3. IBUPROFEN [Suspect]
     Active Substance: IBUPROFEN
     Indication: Rhinorrhoea
  4. ACETAMINOPHEN\BOS TAURUS GALLSTONE\CAFFEINE\CHLORPHENIRAMINE MALEATE [Suspect]
     Active Substance: ACETAMINOPHEN\BOS TAURUS GALLSTONE\CAFFEINE\CHLORPHENIRAMINE MALEATE
     Indication: Nasal congestion
     Route: 065
     Dates: start: 20231105
  5. ACETAMINOPHEN\BOS TAURUS GALLSTONE\CAFFEINE\CHLORPHENIRAMINE MALEATE [Suspect]
     Active Substance: ACETAMINOPHEN\BOS TAURUS GALLSTONE\CAFFEINE\CHLORPHENIRAMINE MALEATE
     Indication: Rhinorrhoea
  6. ACETAMINOPHEN\BOS TAURUS GALLSTONE\CAFFEINE\CHLORPHENIRAMINE MALEATE [Suspect]
     Active Substance: ACETAMINOPHEN\BOS TAURUS GALLSTONE\CAFFEINE\CHLORPHENIRAMINE MALEATE
     Indication: Pyrexia

REACTIONS (7)
  - Blister [Not Recovered/Not Resolved]
  - C-reactive protein increased [Not Recovered/Not Resolved]
  - Neutrophil count increased [Not Recovered/Not Resolved]
  - Incorrect dose administered [Not Recovered/Not Resolved]
  - Inappropriate schedule of product administration [Not Recovered/Not Resolved]
  - Rash erythematous [Not Recovered/Not Resolved]
  - Pruritus [Not Recovered/Not Resolved]

NARRATIVE: CASE EVENT DATE: 20231105
